FAERS Safety Report 18621762 (Version 2)
Quarter: 2021Q1

REPORT INFORMATION
  Report Type: Report from Study
  Country: None (occurrence: CA)
  Receive Date: 20201215
  Receipt Date: 20210213
  Transmission Date: 20210419
  Serious: Yes (Other)
  Sender: FDA-Public Use
  Company Number: CA-ABBVIE-20K-028-3691507-00

PATIENT
  Sex: Male

DRUGS (1)
  1. RINVOQ [Suspect]
     Active Substance: UPADACITINIB
     Indication: RHEUMATOID ARTHRITIS
     Route: 048
     Dates: start: 20200814

REACTIONS (5)
  - Peritoneal dialysis [Unknown]
  - Blood pressure increased [Unknown]
  - Product lot number issue [Unknown]
  - Peritoneal dialysis complication [Unknown]
  - Constipation [Unknown]

NARRATIVE: CASE EVENT DATE: 2020
